FAERS Safety Report 5208991-6 (Version None)
Quarter: 2007Q1

REPORT INFORMATION
  Report Type: 
  Country: None (occurrence: None)
  Receive Date: 20070116
  Receipt Date: 20070112
  Transmission Date: 20070707
  Serious: Yes (Hospitalization)
  Sender: FDA-Public Use
  Company Number: FR-GLAXOSMITHKLINE-B0453903A

PATIENT
  Age: 30 Year
  Sex: Female
  Weight: 63 kg

DRUGS (3)
  1. ZYBAN [Suspect]
     Route: 048
     Dates: start: 20060622
  2. TOPALGIC ( FRANCE ) [Suspect]
     Route: 048
     Dates: end: 20060629
  3. MINIDRIL [Concomitant]
     Route: 048

REACTIONS (7)
  - ARTHRALGIA [None]
  - CONVULSION [None]
  - DRUG INTERACTION [None]
  - FALL [None]
  - INSOMNIA [None]
  - LOSS OF CONSCIOUSNESS [None]
  - VOMITING [None]
